FAERS Safety Report 6006972-6 (Version None)
Quarter: 2008Q4

REPORT INFORMATION
  Report Type: 
  Country: None (occurrence: None)
  Receive Date: 20081217
  Receipt Date: 20080407
  Transmission Date: 20090506
  Serious: No
  Sender: FDA-Public Use
  Company Number: US-ASTRAZENECA-2007UW27912

PATIENT
  Age: 66 Year
  Sex: Male
  Weight: 86.2 kg

DRUGS (6)
  1. CRESTOR [Suspect]
     Indication: HYPERLIPIDAEMIA
     Route: 048
     Dates: start: 20060530
  2. CRESTOR [Suspect]
     Route: 048
     Dates: end: 20071016
  3. ASPIRIN [Concomitant]
  4. FISH OIL [Concomitant]
  5. COD LIVER OIL [Concomitant]
  6. XALATAN [Concomitant]
     Indication: GLAUCOMA
     Route: 047
     Dates: start: 20050405

REACTIONS (3)
  - BURNING SENSATION [None]
  - MUSCLE SPASMS [None]
  - MYALGIA [None]
